FAERS Safety Report 5711587-0 (Version None)
Quarter: 2008Q2

REPORT INFORMATION
  Report Type: 
  Country: None (occurrence: None)
  Receive Date: 20080421
  Receipt Date: 20080414
  Transmission Date: 20081010
  Serious: Yes (Other)
  Sender: FDA-Public Use
  Company Number: CH-GILEAD-2008-0016066

PATIENT
  Age: 47 Year
  Sex: Male

DRUGS (5)
  1. VIREAD [Suspect]
     Route: 048
     Dates: start: 20060301
  2. VIDEX [Suspect]
     Route: 048
     Dates: start: 20060301
  3. REYATAZ [Suspect]
     Route: 048
     Dates: start: 20060301
  4. METHADON STREULI [Suspect]
     Route: 048
     Dates: start: 20060301
  5. NORVIR [Concomitant]
     Route: 048
     Dates: start: 20060301

REACTIONS (1)
  - GYNAECOMASTIA [None]
